FAERS Safety Report 20299320 (Version 1)
Quarter: 2022Q1

REPORT INFORMATION
  Report Type: Spontaneous
  Country: US (occurrence: None)
  Receive Date: 20220104
  Receipt Date: 20220104
  Transmission Date: 20220423
  Serious: Yes (unspecified)
  Sender: FDA-Public Use
  Company Number: None

PATIENT
  Age: 29 Year
  Sex: Female
  Weight: 49.5 kg

DRUGS (4)
  1. INFLECTRA [Suspect]
     Active Substance: INFLIXIMAB-DYYB
     Indication: Crohn^s disease
     Dosage: FREQUENCY : ONCE;?
     Route: 041
     Dates: start: 20220104, end: 20220104
  2. INFLECTRA [Suspect]
     Active Substance: INFLIXIMAB-DYYB
     Indication: Sacroiliitis
  3. Diphenhydramine (Benadryl) [Concomitant]
     Dates: start: 20220104, end: 20220104
  4. Hydrocortisone (Solu-Cortef) [Concomitant]
     Dates: start: 20220104, end: 20220104

REACTIONS (5)
  - Cough [None]
  - Throat tightness [None]
  - Flushing [None]
  - Heart rate increased [None]
  - Infusion related reaction [None]

NARRATIVE: CASE EVENT DATE: 20220104
